FAERS Safety Report 9775602 (Version 1)
Quarter: 2013Q4

REPORT INFORMATION
  Report Type: Spontaneous
  Country: AU (occurrence: AU)
  Receive Date: 20131220
  Receipt Date: 20131220
  Transmission Date: 20140711
  Serious: Yes (Other)
  Sender: FDA-Public Use
  Company Number: AU-JNJFOC-20131211112

PATIENT
  Sex: Male

DRUGS (6)
  1. XARELTO [Suspect]
     Indication: CEREBROVASCULAR ACCIDENT PROPHYLAXIS
     Route: 048
     Dates: start: 20130903
  2. XARELTO [Suspect]
     Indication: ATRIAL FIBRILLATION
     Route: 048
     Dates: start: 20130903
  3. OXAZEPAM [Concomitant]
     Route: 065
  4. DIGOXIN [Concomitant]
     Route: 065
  5. BISOPROLOL [Concomitant]
     Route: 065
  6. NEXIUM [Concomitant]
     Route: 065

REACTIONS (1)
  - Transient ischaemic attack [Unknown]
